FAERS Safety Report 6357399-9 (Version None)
Quarter: 2009Q3

REPORT INFORMATION
  Report Type: 
  Country: None (occurrence: None)
  Receive Date: 20090916
  Receipt Date: 20090907
  Transmission Date: 20100115
  Serious: Yes (Other)
  Sender: FDA-Public Use
  Company Number: GB-BAYER-200931890GPV

PATIENT
  Age: 39 Year

DRUGS (1)
  1. BETAFERON [Suspect]
     Indication: MULTIPLE SCLEROSIS RELAPSE
     Route: 058
     Dates: start: 20071101, end: 20090101

REACTIONS (1)
  - NEPHROTIC SYNDROME [None]
